FAERS Safety Report 6917487-2 (Version None)
Quarter: 2010Q3

REPORT INFORMATION
  Report Type: 
  Country: None (occurrence: None)
  Receive Date: 20100810
  Receipt Date: 20100726
  Transmission Date: 20110219
  Serious: Yes (Death)
  Sender: FDA-Public Use
  Company Number: 7012435

PATIENT
  Sex: 0

DRUGS (1)
  1. REBIF [Suspect]

REACTIONS (1)
  - SUBARACHNOID HAEMORRHAGE [None]
